FAERS Safety Report 8987634 (Version 1)
Quarter: 2012Q4

REPORT INFORMATION
  Report Type: 
  Country: JP (occurrence: JP)
  Receive Date: 20121227
  Receipt Date: 20121227
  Transmission Date: 20130627
  Serious: Yes (Other)
  Sender: FDA-Public Use
  Company Number: JP-ABBOTT-12P-087-1025472-00

PATIENT
  Age: 71 Year
  Sex: Female

DRUGS (11)
  1. CYCLOSPORINE [Suspect]
     Indication: GLOMERULONEPHRITIS MINIMAL LESION
     Route: 048
     Dates: end: 20101101
  2. CYCLOSPORINE [Interacting]
     Dates: start: 20101101
  3. CYCLOSPORINE [Interacting]
  4. MICONAZOLE [Interacting]
     Indication: ORAL CANDIDIASIS
     Dates: start: 20101025
  5. WARFARIN [Interacting]
     Indication: PROPHYLAXIS
     Dosage: 2-2.5 MG/DAY
     Dates: end: 20101101
  6. WARFARIN [Interacting]
     Indication: HYPERCOAGULATION
     Dates: start: 20101102, end: 20101108
  7. PREDNISONE [Concomitant]
     Indication: GLOMERULONEPHRITIS MINIMAL LESION
     Route: 048
  8. FUROSEMIDE [Concomitant]
     Indication: PRODUCT USED FOR UNKNOWN INDICATION
  9. SPIRONOLACTONE [Concomitant]
     Indication: PRODUCT USED FOR UNKNOWN INDICATION
  10. LANSOPRAZOLE [Concomitant]
     Indication: PRODUCT USED FOR UNKNOWN INDICATION
  11. SULFAMETHOXAZOLE W/TRIMETHOPRIM [Concomitant]
     Indication: PRODUCT USED FOR UNKNOWN INDICATION

REACTIONS (3)
  - Drug level increased [Recovered/Resolved]
  - Drug interaction [Recovered/Resolved]
  - International normalised ratio increased [Recovered/Resolved]
